FAERS Safety Report 12131851 (Version 3)
Quarter: 2016Q2

REPORT INFORMATION
  Report Type: Spontaneous
  Country: JP (occurrence: JP)
  Receive Date: 20160301
  Receipt Date: 20160406
  Transmission Date: 20160815
  Serious: Yes (Hospitalization, Other)
  Sender: FDA-Public Use
  Company Number: JP-BRISTOL-MYERS SQUIBB COMPANY-BMS-2016-013256

PATIENT
  Age: 83 Year
  Sex: Female
  Weight: 49.5 kg

DRUGS (6)
  1. WELL BI [Concomitant]
     Indication: VENTRICULAR TACHYCARDIA
     Dosage: UNK
     Route: 048
     Dates: start: 20151030, end: 20151205
  2. CEFTRIAXONE SODIUM. [Concomitant]
     Active Substance: CEFTRIAXONE SODIUM
     Indication: PYREXIA
     Dosage: UNK
     Route: 041
     Dates: start: 20151210, end: 20160107
  3. NESP [Concomitant]
     Active Substance: DARBEPOETIN ALFA
     Indication: NEPHROGENIC ANAEMIA
     Dosage: UNK
     Route: 041
     Dates: start: 20151216
  4. ELIQUIS [Suspect]
     Active Substance: APIXABAN
     Indication: CEREBROVASCULAR ACCIDENT PROPHYLAXIS
     Dosage: 2.5 MG, BID
     Route: 048
     Dates: start: 20151212
  5. UNASYN                             /00903602/ [Concomitant]
     Active Substance: SULTAMICILLIN TOSYLATE
     Indication: PYREXIA
     Dosage: UNK
     Route: 041
     Dates: start: 20151210, end: 20160107
  6. GENTACIN [Concomitant]
     Active Substance: GENTAMICIN SULFATE
     Indication: PYREXIA
     Dosage: 160 MG, UNK
     Route: 041
     Dates: start: 20151210, end: 20160107

REACTIONS (2)
  - Immune thrombocytopenic purpura [Not Recovered/Not Resolved]
  - Pulmonary alveolar haemorrhage [Recovered/Resolved]

NARRATIVE: CASE EVENT DATE: 20160103
